FAERS Safety Report 23444103 (Version 8)
Quarter: 2024Q4

REPORT INFORMATION
  Report Type: Spontaneous
  Country: US (occurrence: US)
  Receive Date: 20240125
  Receipt Date: 20241220
  Transmission Date: 20250115
  Serious: Yes (Hospitalization, Other)
  Sender: BIOMARIN
  Company Number: US-SA-2024SA021473

PATIENT

DRUGS (3)
  1. LARONIDASE [Suspect]
     Active Substance: LARONIDASE
     Indication: Mucopolysaccharidosis I
     Dosage: 17.4 (UNITS NOT PROVIDED), QW
     Route: 042
     Dates: start: 20220210
  2. LARONIDASE [Suspect]
     Active Substance: LARONIDASE
     Dosage: 20.3 (UNITS NOT PROVIDED), QOW
     Route: 042
  3. LARONIDASE [Suspect]
     Active Substance: LARONIDASE
     Dosage: 20.3 TOTAL, QW
     Route: 042

REACTIONS (8)
  - Viral rhinitis [Recovered/Resolved]
  - Corneal opacity [Not Recovered/Not Resolved]
  - Urinary glycosaminoglycans increased [Recovering/Resolving]
  - Hypermobility syndrome [Unknown]
  - Joint noise [Recovered/Resolved]
  - Vision blurred [Not Recovered/Not Resolved]
  - Heart valve incompetence [Not Recovered/Not Resolved]
  - Arthropathy [Recovering/Resolving]

NARRATIVE: CASE EVENT DATE: 20231201
